FAERS Safety Report 21769010 (Version 1)
Quarter: 2022Q4

REPORT INFORMATION
  Report Type: Report from Study
  Country: GR (occurrence: GR)
  Receive Date: 20221222
  Receipt Date: 20221222
  Transmission Date: 20230113
  Serious: Yes (Other)
  Sender: FDA-Public Use
  Company Number: GR-ABBVIE-4237227

PATIENT
  Age: 62 Year
  Sex: Female

DRUGS (2)
  1. CARBIDOPA\LEVODOPA [Suspect]
     Active Substance: CARBIDOPA\LEVODOPA
     Indication: Parkinson^s disease
     Dosage: MORNING DOSE: 11 ML; CONTINUOUS RATE: 3.4 ML/H; EXTRA DOSE: 1 ML
     Route: 050
     Dates: start: 20221206
  2. CARBIDOPA\LEVODOPA [Suspect]
     Active Substance: CARBIDOPA\LEVODOPA
     Dosage: MORNING DOSE: 11 ML; CONTINUOUS RATE: 3.2 ML/H; EXTRA DOSE: 1 ML
     Route: 050
     Dates: start: 20221012, end: 20221206

REACTIONS (2)
  - Tracheostomy [Unknown]
  - Gait inability [Not Recovered/Not Resolved]
